FAERS Safety Report 7363849-1 (Version None)
Quarter: 2011Q1

REPORT INFORMATION
  Report Type: 
  Country: None (occurrence: None)
  Receive Date: 20110321
  Receipt Date: 20110311
  Transmission Date: 20110831
  Serious: Yes (Hospitalization)
  Sender: FDA-Public Use
  Company Number: US-ASTRAZENECA-2011SE09067

PATIENT
  Age: 78 Year
  Sex: Female

DRUGS (2)
  1. ARIMIDEX [Suspect]
     Route: 048
  2. ARIMIDEX [Suspect]
     Route: 048

REACTIONS (4)
  - BREAST OPERATION [None]
  - POST PROCEDURAL HAEMORRHAGE [None]
  - SURGERY [None]
  - ADVERSE DRUG REACTION [None]
